FAERS Safety Report 7381447-0 (Version None)
Quarter: 2011Q1

REPORT INFORMATION
  Report Type: 
  Country: None (occurrence: None)
  Receive Date: 20110329
  Receipt Date: 20110323
  Transmission Date: 20110831
  Serious: Yes (Other)
  Sender: FDA-Public Use
  Company Number: FR-PFIZER INC-2011063939

PATIENT
  Age: 63 Year
  Sex: Male

DRUGS (6)
  1. NEBIVOLOL [Concomitant]
  2. VIAGRA [Suspect]
     Indication: ERECTILE DYSFUNCTION
     Dosage: UNK
     Dates: start: 20090101
  3. TAHOR [Concomitant]
  4. ADANCOR [Concomitant]
  5. PLAVIX [Concomitant]
  6. RAMIPRIL [Concomitant]

REACTIONS (1)
  - INFARCTION [None]
